FAERS Safety Report 8350686-4 (Version None)
Quarter: 2012Q2

REPORT INFORMATION
  Report Type: 
  Country: None (occurrence: None)
  Receive Date: 20120510
  Receipt Date: 20120430
  Transmission Date: 20120825
  Serious: Yes (Other)
  Sender: FDA-Public Use
  Company Number: BR-JNJFOC-20120504355

PATIENT
  Age: 29 Year
  Sex: Female

DRUGS (3)
  1. MICRONOR [Suspect]
     Indication: CONTRACEPTION
     Route: 048
     Dates: start: 20100101, end: 20120426
  2. ACETAMINOPHEN [Suspect]
     Indication: MIGRAINE
     Route: 048
     Dates: start: 20110101, end: 20120101
  3. ACETAMINOPHEN [Suspect]
     Route: 048

REACTIONS (2)
  - MATERNAL EXPOSURE DURING PREGNANCY [None]
  - PREGNANCY ON ORAL CONTRACEPTIVE [None]
